FAERS Safety Report 4559786-8 (Version None)
Quarter: 2005Q1

REPORT INFORMATION
  Report Type: 
  Country: None (occurrence: None)
  Receive Date: 20050110
  Receipt Date: 20040304
  Transmission Date: 20050727
  Serious: Yes (Other)
  Sender: FDA-Public Use
  Company Number: US-JNJFOC-20041104821

PATIENT
  Age: 2 Year
  Sex: Female

DRUGS (1)
  1. IMODIUM A-D [Suspect]
     Dosage: 4 MG, 1 IN 1 TOTAL, ORAL
     Route: 048
     Dates: start: 20031110, end: 20031110

REACTIONS (2)
  - ACCIDENTAL EXPOSURE [None]
  - VOMITING [None]
